FAERS Safety Report 6208111-5 (Version None)
Quarter: 2009Q2

REPORT INFORMATION
  Report Type: 
  Country: None (occurrence: None)
  Receive Date: 20090529
  Receipt Date: 20081107
  Transmission Date: 20091009
  Serious: No
  Sender: FDA-Public Use
  Company Number: A0755608A

PATIENT
  Sex: Male

DRUGS (1)
  1. RETROVIR [Suspect]
     Indication: HIV INFECTION
     Dosage: 300MG PER DAY
     Route: 048

REACTIONS (2)
  - HEPATIC FUNCTION ABNORMAL [None]
  - RENAL IMPAIRMENT [None]
